FAERS Safety Report 6120723-6 (Version None)
Quarter: 2009Q1

REPORT INFORMATION
  Report Type: 
  Country: None (occurrence: None)
  Receive Date: 20090312
  Receipt Date: 20090225
  Transmission Date: 20090719
  Serious: Yes (Life-Threatening, Hospitalization)
  Sender: FDA-Public Use
  Company Number: 6049319

PATIENT
  Age: 69 Year
  Sex: Male

DRUGS (3)
  1. LEVOTHYROXINE SODIUM [Suspect]
     Indication: SCINTIGRAPHY
     Dosage: 3 MG (1 MG, 3 IN 1 D) ORAL
     Route: 048
     Dates: start: 20081203, end: 20081203
  2. SHAN YAO KE LI [Suspect]
     Indication: DRUG USE FOR UNKNOWN INDICATION
     Dosage: ORAL
     Route: 048
  3. ISOPRINOSINE (INOSNE PRANOBEX) [Concomitant]

REACTIONS (1)
  - SUBACUTE HEPATIC FAILURE [None]
